FAERS Safety Report 5117529-3 (Version None)
Quarter: 2006Q3

REPORT INFORMATION
  Report Type: 
  Country: None (occurrence: None)
  Receive Date: 20060926
  Receipt Date: 20060908
  Transmission Date: 20061208
  Serious: Yes (Hospitalization)
  Sender: FDA-Public Use
  Company Number: US200609001967

PATIENT
  Age: 65 Year
  Sex: Male

DRUGS (2)
  1. HUMULIN R [Suspect]
     Indication: DIABETES MELLITUS NON-INSULIN-DEPENDENT
     Dosage: UNK, AS NEEDED, UNK
  2. HUMULIN N [Suspect]
     Indication: DIABETES MELLITUS NON-INSULIN-DEPENDENT
     Dosage: UNK, EACH EVENING, UNK

REACTIONS (2)
  - DIABETES MELLITUS INADEQUATE CONTROL [None]
  - MYOCARDIAL INFARCTION [None]
